FAERS Safety Report 8153446-2 (Version None)
Quarter: 2012Q1

REPORT INFORMATION
  Report Type: 
  Country: None (occurrence: None)
  Receive Date: 20120221
  Receipt Date: 20120206
  Transmission Date: 20120608
  Serious: Yes (Hospitalization)
  Sender: FDA-Public Use
  Company Number: US-ROCHE-1040809

PATIENT
  Age: 67 Year
  Sex: Male
  Weight: 94.886 kg

DRUGS (7)
  1. GEMCITABINE HYDROCHLORIDE [Suspect]
     Indication: BILE DUCT CANCER
     Dosage: DAY 1 AND DAY 8, THERAPY HELD
     Route: 042
     Dates: start: 20111229
  2. FLAGYL [Concomitant]
     Dates: start: 20120103, end: 20120101
  3. AVASTIN [Suspect]
     Indication: BILE DUCT CANCER
     Dosage: 1397, D1, THERAPY HELD
     Route: 042
     Dates: start: 20111229
  4. CIPROFLOXACIN [Concomitant]
     Dates: start: 20120103, end: 20120101
  5. XELODA [Suspect]
     Dosage: CYCLE 2, THERAPY HELD
     Dates: start: 20120119
  6. XELODA [Suspect]
     Indication: BILE DUCT CANCER
     Dosage: DAY1-14, DOSE HELD
     Route: 048
     Dates: start: 20111229
  7. CEFEPIME [Concomitant]

REACTIONS (9)
  - COLITIS [None]
  - THROMBOCYTOPENIA [None]
  - ANAEMIA [None]
  - HYPERBILIRUBINAEMIA [None]
  - HYPOCALCAEMIA [None]
  - DIARRHOEA [None]
  - PYREXIA [None]
  - HYPERGLYCAEMIA [None]
  - HYPONATRAEMIA [None]
